FAERS Safety Report 14940911 (Version 1)
Quarter: 2018Q2

REPORT INFORMATION
  Report Type: Spontaneous
  Country: US (occurrence: US)
  Receive Date: 20180525
  Receipt Date: 20180525
  Transmission Date: 20180711
  Serious: Yes (Other)
  Sender: FDA-Public Use
  Company Number: US-TEVA-2018-US-894107

PATIENT
  Sex: Female
  Weight: 58 kg

DRUGS (6)
  1. METFORMIN [Concomitant]
     Active Substance: METFORMIN HYDROCHLORIDE
     Indication: DIABETES MELLITUS
  2. AMLODIPINE [Concomitant]
     Active Substance: AMLODIPINE BESYLATE
     Indication: HYPERTENSION
  3. OMEPRAZOLE. [Concomitant]
     Active Substance: OMEPRAZOLE
     Indication: GASTROOESOPHAGEAL REFLUX DISEASE
  4. ALLOPURINOL. [Concomitant]
     Active Substance: ALLOPURINOL
     Indication: PRODUCT USED FOR UNKNOWN INDICATION
  5. SYNRIBO [Suspect]
     Active Substance: OMACETAXINE MEPESUCCINATE
     Indication: CHRONIC MYELOID LEUKAEMIA
     Dosage: STRENGTH: 8
     Dates: start: 20180308
  6. ATORVASTATIN [Concomitant]
     Active Substance: ATORVASTATIN
     Indication: HYPERLIPIDAEMIA

REACTIONS (4)
  - Blood glucose increased [Unknown]
  - White blood cell count decreased [Not Recovered/Not Resolved]
  - Diarrhoea [Unknown]
  - Blood count abnormal [Not Recovered/Not Resolved]
